FAERS Safety Report 7660092-3 (Version None)
Quarter: 2011Q3

REPORT INFORMATION
  Report Type: 
  Country: None (occurrence: None)
  Receive Date: 20110805
  Receipt Date: 20110722
  Transmission Date: 20111222
  Serious: Yes (Other)
  Sender: FDA-Public Use
  Company Number: PHHY2011BR67197

PATIENT
  Sex: Female

DRUGS (1)
  1. DIOVAN HCT [Suspect]
     Dosage: UNK UKN, UNK
     Route: 048

REACTIONS (5)
  - OEDEMA PERIPHERAL [None]
  - THYROID DISORDER [None]
  - DIABETES MELLITUS [None]
  - LIMB DISCOMFORT [None]
  - THROMBOSIS [None]
